FAERS Safety Report 12505867 (Version 1)
Quarter: 2016Q2

REPORT INFORMATION
  Report Type: Spontaneous
  Country: US (occurrence: US)
  Receive Date: 20160628
  Receipt Date: 20160628
  Transmission Date: 20160815
  Serious: Yes (Hospitalization)
  Sender: FDA-Public Use
  Company Number: US-MYLANLABS-2015M1020250

PATIENT
  Age: 60 Year
  Sex: Female

DRUGS (10)
  1. METHOTREXATE [Suspect]
     Active Substance: METHOTREXATE
     Indication: RHEUMATOID ARTHRITIS
     Dosage: 15 MG, QW
  2. HUMALOG [Suspect]
     Active Substance: INSULIN LISPRO
     Dosage: 40-45 UNITS, TID
  3. LANTUS [Suspect]
     Active Substance: INSULIN GLARGINE
     Dosage: 75-80 UNITS
  4. TRIAMTERENE AND HYDROCHLOROTHIAZIDE [Suspect]
     Active Substance: HYDROCHLOROTHIAZIDE\TRIAMTERENE
     Indication: BLOOD PRESSURE MEASUREMENT
     Dosage: 37.5/25 MG
  5. LYRICA [Suspect]
     Active Substance: PREGABALIN
     Indication: NEUROPATHY PERIPHERAL
     Dosage: 75 MG, BID
  6. QUINAPRIL. [Suspect]
     Active Substance: QUINAPRIL
     Dosage: 5 MG, QD
  7. FOLIC ACID. [Suspect]
     Active Substance: FOLIC ACID
     Dosage: 1 MG, QD
  8. PREDNISONE. [Suspect]
     Active Substance: PREDNISONE
     Indication: RHEUMATOID ARTHRITIS
     Dosage: 10 MG, QD
  9. VITAMIN D2 [Suspect]
     Active Substance: ERGOCALCIFEROL
     Indication: PROPHYLAXIS
     Dosage: 50000 IU, MONTHLY
  10. METOPROLOL TARTRATE. [Suspect]
     Active Substance: METOPROLOL TARTRATE
     Dosage: 25 MG, BID

REACTIONS (1)
  - Sepsis [Recovered/Resolved]

NARRATIVE: CASE EVENT DATE: 20150215
